FAERS Safety Report 15131117 (Version 1)
Quarter: 2018Q3

REPORT INFORMATION
  Report Type: Spontaneous
  Country: PL (occurrence: PL)
  Receive Date: 20180711
  Receipt Date: 20180711
  Transmission Date: 20181010
  Serious: Yes (Other)
  Sender: FDA-Public Use
  Company Number: PL-ASTRAZENECA-2018SE88102

PATIENT
  Sex: Female

DRUGS (48)
  1. LYNPARZA [Suspect]
     Active Substance: OLAPARIB
     Indication: PROPHYLAXIS
     Dosage: 1ST ADMINISTRATION
     Route: 048
     Dates: start: 20161212
  2. LYNPARZA [Suspect]
     Active Substance: OLAPARIB
     Indication: FALLOPIAN TUBE CANCER
     Dosage: 9TH ADMINISTRATION
     Route: 048
     Dates: start: 20170823
  3. LYNPARZA [Suspect]
     Active Substance: OLAPARIB
     Indication: PROPHYLAXIS
     Dosage: 11TH ADMINISTRATION
     Route: 048
     Dates: start: 20171025
  4. LYNPARZA [Suspect]
     Active Substance: OLAPARIB
     Indication: OVARIAN CANCER
     Dosage: 14TH ADMINISTRATION
     Route: 048
     Dates: start: 20180124
  5. LYNPARZA [Suspect]
     Active Substance: OLAPARIB
     Indication: PROPHYLAXIS
     Dosage: 15TH ADMINISTRATION
     Route: 048
     Dates: start: 20180430
  6. LYNPARZA [Suspect]
     Active Substance: OLAPARIB
     Indication: FALLOPIAN TUBE CANCER
     Dosage: 16TH ADMINISTRATION
     Route: 048
     Dates: start: 20180528, end: 20180613
  7. LYNPARZA [Suspect]
     Active Substance: OLAPARIB
     Indication: PROPHYLAXIS
     Dosage: 4TH ADMINISTRATION
     Route: 048
     Dates: start: 20170307
  8. LYNPARZA [Suspect]
     Active Substance: OLAPARIB
     Indication: OVARIAN CANCER
     Dosage: 5TH ADMINISTRATION
     Route: 048
     Dates: start: 20170404
  9. LYNPARZA [Suspect]
     Active Substance: OLAPARIB
     Indication: PROPHYLAXIS
     Dosage: 8TH ADMINISTRATION
     Route: 048
     Dates: start: 20170726
  10. LYNPARZA [Suspect]
     Active Substance: OLAPARIB
     Indication: PROPHYLAXIS
     Dosage: 12TH ADMINISTRATION
     Route: 048
     Dates: start: 20171127
  11. LYNPARZA [Suspect]
     Active Substance: OLAPARIB
     Indication: OVARIAN CANCER
     Dosage: 12TH ADMINISTRATION
     Route: 048
     Dates: start: 20171127
  12. LYNPARZA [Suspect]
     Active Substance: OLAPARIB
     Indication: OVARIAN CANCER
     Dosage: 4TH ADMINISTRATION
     Route: 048
     Dates: start: 20170307
  13. LYNPARZA [Suspect]
     Active Substance: OLAPARIB
     Indication: PROPHYLAXIS
     Dosage: 5TH ADMINISTRATION
     Route: 048
     Dates: start: 20170404
  14. LYNPARZA [Suspect]
     Active Substance: OLAPARIB
     Indication: PROPHYLAXIS
     Dosage: 9TH ADMINISTRATION
     Route: 048
     Dates: start: 20170823
  15. LYNPARZA [Suspect]
     Active Substance: OLAPARIB
     Indication: FALLOPIAN TUBE CANCER
     Dosage: 12TH ADMINISTRATION
     Route: 048
     Dates: start: 20171127
  16. LYNPARZA [Suspect]
     Active Substance: OLAPARIB
     Indication: FALLOPIAN TUBE CANCER
     Dosage: 13TH ADMINISTRATION
     Route: 048
     Dates: start: 20171211
  17. LYNPARZA [Suspect]
     Active Substance: OLAPARIB
     Indication: OVARIAN CANCER
     Dosage: 3RD ADMINISTRATION
     Route: 048
     Dates: start: 20170207
  18. LYNPARZA [Suspect]
     Active Substance: OLAPARIB
     Indication: OVARIAN CANCER
     Dosage: 7TH ADMINISTRATION
     Route: 048
     Dates: start: 20170628
  19. LYNPARZA [Suspect]
     Active Substance: OLAPARIB
     Indication: OVARIAN CANCER
     Dosage: 8TH ADMINISTRATION
     Route: 048
     Dates: start: 20170726
  20. LYNPARZA [Suspect]
     Active Substance: OLAPARIB
     Indication: OVARIAN CANCER
     Dosage: 11TH ADMINISTRATION
     Route: 048
     Dates: start: 20171025
  21. LYNPARZA [Suspect]
     Active Substance: OLAPARIB
     Indication: OVARIAN CANCER
     Dosage: 13TH ADMINISTRATION
     Route: 048
     Dates: start: 20171211
  22. LYNPARZA [Suspect]
     Active Substance: OLAPARIB
     Indication: PROPHYLAXIS
     Dosage: 16TH ADMINISTRATION
     Route: 048
     Dates: start: 20180528, end: 20180613
  23. LYNPARZA [Suspect]
     Active Substance: OLAPARIB
     Indication: OVARIAN CANCER
     Dosage: 16TH ADMINISTRATION
     Route: 048
     Dates: start: 20180528, end: 20180613
  24. LYNPARZA [Suspect]
     Active Substance: OLAPARIB
     Indication: FALLOPIAN TUBE CANCER
     Dosage: 5TH ADMINISTRATION
     Route: 048
     Dates: start: 20170404
  25. LYNPARZA [Suspect]
     Active Substance: OLAPARIB
     Indication: OVARIAN CANCER
     Dosage: 6TH ADMINISTRATION
     Route: 048
     Dates: start: 20170531
  26. LYNPARZA [Suspect]
     Active Substance: OLAPARIB
     Indication: OVARIAN CANCER
     Dosage: 9TH ADMINISTRATION
     Route: 048
     Dates: start: 20170823
  27. LYNPARZA [Suspect]
     Active Substance: OLAPARIB
     Indication: FALLOPIAN TUBE CANCER
     Dosage: 11TH ADMINISTRATION
     Route: 048
     Dates: start: 20171025
  28. LYNPARZA [Suspect]
     Active Substance: OLAPARIB
     Indication: PROPHYLAXIS
     Dosage: 13TH ADMINISTRATION
     Route: 048
     Dates: start: 20171211
  29. LYNPARZA [Suspect]
     Active Substance: OLAPARIB
     Indication: PROPHYLAXIS
     Dosage: 14TH ADMINISTRATION
     Route: 048
     Dates: start: 20180124
  30. LYNPARZA [Suspect]
     Active Substance: OLAPARIB
     Indication: PROPHYLAXIS
     Dosage: 6TH ADMINISTRATION
     Route: 048
     Dates: start: 20170531
  31. LYNPARZA [Suspect]
     Active Substance: OLAPARIB
     Indication: FALLOPIAN TUBE CANCER
     Dosage: 10TH ADMINISTRATION
     Route: 048
     Dates: start: 20170927
  32. LYNPARZA [Suspect]
     Active Substance: OLAPARIB
     Indication: OVARIAN CANCER
     Dosage: 15TH ADMINISTRATION
     Route: 048
     Dates: start: 20180430
  33. LYNPARZA [Suspect]
     Active Substance: OLAPARIB
     Indication: OVARIAN CANCER
     Dosage: 1ST ADMINISTRATION
     Route: 048
     Dates: start: 20161212
  34. LYNPARZA [Suspect]
     Active Substance: OLAPARIB
     Indication: OVARIAN CANCER
     Dosage: 2ND ADMINISTRATION
     Route: 048
     Dates: start: 20170110
  35. LYNPARZA [Suspect]
     Active Substance: OLAPARIB
     Indication: FALLOPIAN TUBE CANCER
     Dosage: 2ND ADMINISTRATION
     Route: 048
     Dates: start: 20170110
  36. LYNPARZA [Suspect]
     Active Substance: OLAPARIB
     Indication: FALLOPIAN TUBE CANCER
     Dosage: 6TH ADMINISTRATION
     Route: 048
     Dates: start: 20170531
  37. LYNPARZA [Suspect]
     Active Substance: OLAPARIB
     Indication: FALLOPIAN TUBE CANCER
     Dosage: 7TH ADMINISTRATION
     Route: 048
     Dates: start: 20170628
  38. LYNPARZA [Suspect]
     Active Substance: OLAPARIB
     Indication: FALLOPIAN TUBE CANCER
     Dosage: 8TH ADMINISTRATION
     Route: 048
     Dates: start: 20170726
  39. LYNPARZA [Suspect]
     Active Substance: OLAPARIB
     Indication: FALLOPIAN TUBE CANCER
     Dosage: 15TH ADMINISTRATION
     Route: 048
     Dates: start: 20180430
  40. LYNPARZA [Suspect]
     Active Substance: OLAPARIB
     Indication: FALLOPIAN TUBE CANCER
     Dosage: 1ST ADMINISTRATION
     Route: 048
     Dates: start: 20161212
  41. LYNPARZA [Suspect]
     Active Substance: OLAPARIB
     Indication: PROPHYLAXIS
     Dosage: 2ND ADMINISTRATION
     Route: 048
     Dates: start: 20170110
  42. LYNPARZA [Suspect]
     Active Substance: OLAPARIB
     Indication: PROPHYLAXIS
     Dosage: 3RD ADMINISTRATION
     Route: 048
     Dates: start: 20170207
  43. LYNPARZA [Suspect]
     Active Substance: OLAPARIB
     Indication: FALLOPIAN TUBE CANCER
     Dosage: 3RD ADMINISTRATION
     Route: 048
     Dates: start: 20170207
  44. LYNPARZA [Suspect]
     Active Substance: OLAPARIB
     Indication: FALLOPIAN TUBE CANCER
     Dosage: 4TH ADMINISTRATION
     Route: 048
     Dates: start: 20170307
  45. LYNPARZA [Suspect]
     Active Substance: OLAPARIB
     Indication: PROPHYLAXIS
     Dosage: 7TH ADMINISTRATION
     Route: 048
     Dates: start: 20170628
  46. LYNPARZA [Suspect]
     Active Substance: OLAPARIB
     Indication: PROPHYLAXIS
     Dosage: 10TH ADMINISTRATION
     Route: 048
     Dates: start: 20170927
  47. LYNPARZA [Suspect]
     Active Substance: OLAPARIB
     Indication: OVARIAN CANCER
     Dosage: 10TH ADMINISTRATION
     Route: 048
     Dates: start: 20170927
  48. LYNPARZA [Suspect]
     Active Substance: OLAPARIB
     Indication: FALLOPIAN TUBE CANCER
     Dosage: 14TH ADMINISTRATION
     Route: 048
     Dates: start: 20180124

REACTIONS (1)
  - Malignant neoplasm progression [Unknown]
